FAERS Safety Report 24359021 (Version 1)
Quarter: 2024Q3

REPORT INFORMATION
  Report Type: Report from Study
  Country: KW (occurrence: KW)
  Receive Date: 20240924
  Receipt Date: 20240924
  Transmission Date: 20241017
  Serious: Yes (Other)
  Sender: AEGERION
  Company Number: KW-AMRYT PHARMACEUTICALS DAC-AEGR007171

PATIENT

DRUGS (11)
  1. LOMITAPIDE [Suspect]
     Active Substance: LOMITAPIDE
     Indication: Type IIa hyperlipidaemia
     Dosage: 5 MILLIGRAM
     Route: 048
     Dates: start: 20240513
  2. LOMITAPIDE [Suspect]
     Active Substance: LOMITAPIDE
     Dosage: 10 MILLIGRAM
     Route: 048
     Dates: start: 20240513
  3. LOMITAPIDE [Suspect]
     Active Substance: LOMITAPIDE
     Dosage: 5 MILLIGRAM
     Route: 048
     Dates: start: 20240709
  4. ASPIRIN [Concomitant]
     Active Substance: ASPIRIN
     Indication: Product used for unknown indication
     Dosage: UNK
  5. CRESTOR [Concomitant]
     Active Substance: ROSUVASTATIN CALCIUM
     Indication: Product used for unknown indication
     Dosage: UNK
  6. EZETIMIBE [Concomitant]
     Active Substance: EZETIMIBE
     Indication: Product used for unknown indication
     Dosage: UNK
  7. VITAMIN A [Concomitant]
     Active Substance: VITAMIN A
     Indication: Product used for unknown indication
     Dosage: UNK
  8. VITAMIN D NOS [Concomitant]
     Active Substance: CHOLECALCIFEROL\ERGOCALCIFEROL
     Indication: Product used for unknown indication
     Dosage: UNK
  9. CALCIUM [Concomitant]
     Active Substance: CALCIUM
     Indication: Product used for unknown indication
  10. .ALPHA.-TOCOPHEROL [Concomitant]
     Active Substance: .ALPHA.-TOCOPHEROL
     Indication: Product used for unknown indication
     Dosage: UNK
  11. OMEGA-3 FATTY ACIDS [Concomitant]
     Active Substance: OMEGA-3 FATTY ACIDS
     Indication: Product used for unknown indication
     Dosage: UNK

REACTIONS (12)
  - Cardiac operation [Unknown]
  - Cardiac valve disease [Unknown]
  - Tongue discolouration [Unknown]
  - Palpitations [Unknown]
  - Blood pressure decreased [Unknown]
  - Dyspnoea [Unknown]
  - Hypoglycaemia [Unknown]
  - Blood creatinine decreased [Unknown]
  - Nausea [Unknown]
  - Headache [Unknown]
  - Dizziness [Unknown]
  - Fatigue [Unknown]

NARRATIVE: CASE EVENT DATE: 20240515
